FAERS Safety Report 7872263 (Version 4)
Quarter: 2012Q4

REPORT INFORMATION
  Report Type: 
  Country: US (occurrence: US)
  Receive Date: 20110325
  Receipt Date: 20121217
  Transmission Date: 20130627
  Serious: Yes (Hospitalization, Disabling, Other)
  Sender: FDA-Public Use
  Company Number: US-PFIZER INC-HQWYE182116JUL04

PATIENT
  Age: 59 Year
  Sex: Female

DRUGS (14)
  1. PREMARIN [Suspect]
     Indication: HORMONE REPLACEMENT THERAPY
     Dosage: 0.625 mg, UNK
     Route: 048
     Dates: start: 20001116
  2. PROVERA [Suspect]
     Indication: HORMONE REPLACEMENT THERAPY
     Dosage: UNK
     Route: 048
     Dates: start: 1997, end: 199708
  3. PROVERA [Suspect]
     Indication: OLIGOMENORRHEA
  4. PREMPRO [Suspect]
     Indication: HORMONE REPLACEMENT THERAPY
     Dosage: 0.625 mg/2.5mg, once daily
     Route: 048
     Dates: start: 1993, end: 201003
  5. ALTACE [Concomitant]
     Dosage: 2.5 mg, 1x/day
     Route: 048
     Dates: start: 2003
  6. ACETYLSALICYLIC ACID [Concomitant]
     Indication: OBSTRUCTION
     Dosage: 81 mg, 1x/day
     Route: 048
     Dates: start: 2003
  7. CYANOCOBALAMIN [Concomitant]
     Indication: B12 DEFICIENCY ANEMIA
     Dosage: UNK
     Dates: start: 2003
  8. COMBIVENT [Concomitant]
     Indication: ASTHMA
     Dosage: 18-103mcg two inhalations every 4 hours, as needed
     Dates: start: 2007
  9. COMBIVENT [Concomitant]
     Indication: COPD
  10. ADVAIR [Concomitant]
     Indication: ASTHMA
     Dosage: 250-50mcg inhalation twice daily
     Route: 048
     Dates: start: 2007
  11. ADVAIR [Concomitant]
     Indication: COPD
  12. MONTELUKAST [Concomitant]
     Indication: ASTHMA
     Dosage: 10 mg, 1x/day
     Route: 048
     Dates: start: 2007
  13. MONTELUKAST [Concomitant]
     Indication: COPD
  14. ATENOLOL [Concomitant]
     Indication: HEARTBEATS INCREASED
     Dosage: 25 mg, 2x/day
     Route: 048
     Dates: start: 2008

REACTIONS (3)
  - Breast cancer female [Unknown]
  - Depression [Not Recovered/Not Resolved]
  - Anxiety [Not Recovered/Not Resolved]
